FAERS Safety Report 7290454-8 (Version None)
Quarter: 2011Q1

REPORT INFORMATION
  Report Type: 
  Country: None (occurrence: None)
  Receive Date: 20110214
  Receipt Date: 20110210
  Transmission Date: 20110831
  Serious: No
  Sender: FDA-Public Use
  Company Number: US-PFIZER INC-2010105340

PATIENT
  Sex: Female
  Weight: 68.027 kg

DRUGS (6)
  1. VICODIN [Concomitant]
     Indication: PAIN
     Dosage: UNK, OCASSIONALY
  2. ADDERALL 10 [Concomitant]
     Dosage: UNK
  3. ZOLOFT [Suspect]
     Indication: DEPRESSION
     Dosage: 200 MG DAILY
     Route: 048
     Dates: start: 20060901
  4. PRISTIQ [Suspect]
     Indication: DEPRESSION
     Dosage: 50 MG, 1X/DAY
     Route: 048
     Dates: start: 20100803
  5. TRILAFON [Concomitant]
     Dosage: UNK
  6. AMBIEN [Suspect]
     Indication: SLEEP DISORDER
     Dosage: UNK

REACTIONS (5)
  - SEDATION [None]
  - FATIGUE [None]
  - DIZZINESS [None]
  - CENTRAL NERVOUS SYSTEM STIMULATION [None]
  - HEADACHE [None]
